FAERS Safety Report 11519393 (Version 1)
Quarter: 2015Q3

REPORT INFORMATION
  Report Type: Spontaneous
  Country: IT (occurrence: IT)
  Receive Date: 20150918
  Receipt Date: 20150918
  Transmission Date: 20151125
  Serious: Yes (Hospitalization)
  Sender: FDA-Public Use
  Company Number: IT-AUROBINDO-AUR-APL-2015-08121

PATIENT
  Age: 54 Year
  Sex: Female

DRUGS (2)
  1. OLANZAPINE 10MG [Suspect]
     Active Substance: OLANZAPINE
     Indication: PRODUCT USED FOR UNKNOWN INDICATION
     Dosage: 140 G, TOTAL
     Route: 048
     Dates: start: 20150705, end: 20150705
  2. EN [Suspect]
     Active Substance: DELORAZEPAM
     Indication: PRODUCT USED FOR UNKNOWN INDICATION
     Dosage: 40 GTT, TOTAL
     Route: 048
     Dates: start: 20150705, end: 20150705

REACTIONS (11)
  - Aggression [Unknown]
  - Agitation [Unknown]
  - Drug abuse [Unknown]
  - Dysphoria [Unknown]
  - Sopor [Unknown]
  - Dysarthria [Unknown]
  - Loss of consciousness [Unknown]
  - Irritability [Unknown]
  - Intentional self-injury [Unknown]
  - Miosis [Unknown]
  - Crying [Unknown]

NARRATIVE: CASE EVENT DATE: 20150705
